FAERS Safety Report 24384260 (Version 1)
Quarter: 2024Q4

REPORT INFORMATION
  Report Type: Spontaneous
  Country: DE (occurrence: DE)
  Receive Date: 20241001
  Receipt Date: 20241001
  Transmission Date: 20250114
  Serious: Yes (Hospitalization)
  Sender: ROCHE
  Company Number: DE-002147023-PHHY2009DE05804

PATIENT
  Sex: Male

DRUGS (2)
  1. LUCENTIS [Suspect]
     Active Substance: RANIBIZUMAB
     Indication: Choroidal neovascularisation
     Dosage: UNK
     Route: 050
     Dates: start: 20080827, end: 20081210
  2. TRIAMCINOLONE [Concomitant]
     Active Substance: TRIAMCINOLONE
     Indication: Choroidal neovascularisation
     Dosage: UNK
     Route: 050
     Dates: start: 20080827

REACTIONS (12)
  - Choroidal neovascularisation [Recovering/Resolving]
  - Disease recurrence [Recovering/Resolving]
  - Visual acuity reduced [Recovering/Resolving]
  - Endophthalmitis [Recovering/Resolving]
  - Vitritis [Recovering/Resolving]
  - Type II hypersensitivity [Recovering/Resolving]
  - Type III immune complex mediated reaction [Recovering/Resolving]
  - Retinal vasculitis [Recovering/Resolving]
  - Cyclitis [Recovering/Resolving]
  - Retinal haemorrhage [Recovering/Resolving]
  - Retinal detachment [Recovering/Resolving]
  - Retinal tear [Recovering/Resolving]

NARRATIVE: CASE EVENT DATE: 20080827
